FAERS Safety Report 5248092-4 (Version None)
Quarter: 2007Q1

REPORT INFORMATION
  Report Type: 
  Country: None (occurrence: None)
  Receive Date: 20070227
  Receipt Date: 20070223
  Transmission Date: 20070707
  Serious: Yes (Other)
  Sender: FDA-Public Use
  Company Number: US-GLAXOSMITHKLINE-A0640790A

PATIENT
  Age: 66 Year
  Sex: Female

DRUGS (6)
  1. LAMICTAL [Suspect]
     Indication: DEPRESSION
     Dosage: 25MG PER DAY
     Route: 048
     Dates: start: 20070219
  2. DYCLONINE [Concomitant]
  3. UNSPECIFIED MEDICATION [Concomitant]
  4. PROZAC [Concomitant]
  5. DILANTIN [Concomitant]
  6. ALBUTEROL [Concomitant]

REACTIONS (10)
  - ASTHMA [None]
  - CHEST PAIN [None]
  - CONFUSIONAL STATE [None]
  - HEADACHE [None]
  - INSOMNIA [None]
  - NAUSEA [None]
  - PALPITATIONS [None]
  - PRURITUS [None]
  - RASH [None]
  - VOMITING [None]
